FAERS Safety Report 16323326 (Version 1)
Quarter: 2019Q2

REPORT INFORMATION
  Report Type: Spontaneous
  Country: US (occurrence: US)
  Receive Date: 20190517
  Receipt Date: 20190517
  Transmission Date: 20190711
  Serious: No
  Sender: FDA-Public Use
  Company Number: US-APOTEX-2019AP009444

PATIENT
  Age: 70 Year
  Sex: Female

DRUGS (1)
  1. IMIQUIMOD. [Suspect]
     Active Substance: IMIQUIMOD
     Indication: EXTRAMAMMARY PAGET^S DISEASE
     Route: 065

REACTIONS (4)
  - Pyrexia [Unknown]
  - Dysphagia [Unknown]
  - Therapeutic response decreased [Unknown]
  - Fatigue [Unknown]
